FAERS Safety Report 12470329 (Version 2)
Quarter: 2016Q2

REPORT INFORMATION
  Report Type: Spontaneous
  Country: JP (occurrence: JP)
  Receive Date: 20160616
  Receipt Date: 20160622
  Transmission Date: 20160815
  Serious: Yes (Other)
  Sender: FDA-Public Use
  Company Number: JP-ROCHE-1776527

PATIENT
  Age: 72 Year
  Sex: Female

DRUGS (7)
  1. LUCENTIS [Suspect]
     Active Substance: RANIBIZUMAB
     Indication: POLYPOIDAL CHOROIDAL VASCULOPATHY
     Route: 031
     Dates: start: 20160224
  2. LUCENTIS [Suspect]
     Active Substance: RANIBIZUMAB
     Route: 031
     Dates: start: 20160427
  3. VISUDYNE [Suspect]
     Active Substance: VERTEPORFIN
     Indication: AGE-RELATED MACULAR DEGENERATION
     Dosage: FOUR TIMES
     Route: 042
     Dates: start: 2011
  4. PEGAPTANIB [Concomitant]
     Active Substance: PEGAPTANIB
     Indication: POLYPOIDAL CHOROIDAL VASCULOPATHY
     Dosage: 6 TIMES ON RIGHT EYE, 8 TIMES ON LEFT EYE
     Route: 031
     Dates: start: 201412, end: 201509
  5. BAYASPIRIN [Concomitant]
     Active Substance: ASPIRIN
     Indication: PRODUCT USED FOR UNKNOWN INDICATION
     Dosage: UNK
     Route: 048
  6. LUCENTIS [Suspect]
     Active Substance: RANIBIZUMAB
     Route: 031
     Dates: start: 20160329
  7. VISUDYNE [Suspect]
     Active Substance: VERTEPORFIN
     Indication: POLYPOIDAL CHOROIDAL VASCULOPATHY
     Dosage: LEFT EYE
     Route: 042
     Dates: start: 20160202

REACTIONS (3)
  - Retinal haemorrhage [Recovered/Resolved]
  - Visual acuity reduced [Unknown]
  - Retinal detachment [Unknown]

NARRATIVE: CASE EVENT DATE: 201412
